FAERS Safety Report 17129092 (Version 2)
Quarter: 2019Q4

REPORT INFORMATION
  Report Type: Report from Study
  Country: DE (occurrence: DE)
  Receive Date: 20191209
  Receipt Date: 20191227
  Transmission Date: 20200122
  Serious: Yes (Hospitalization, Other)
  Sender: FDA-Public Use
  Company Number: DE-MYLANLABS-2019M1067702

PATIENT
  Sex: Male
  Weight: 87.5 kg

DRUGS (17)
  1. PREDNISOLONE. [Suspect]
     Active Substance: PREDNISOLONE
     Indication: ACUTE MYELOID LEUKAEMIA
     Dosage: 10 MILLIGRAM, QD
     Dates: start: 20190503, end: 20190503
  2. VITAMIN D                          /00107901/ [Concomitant]
     Active Substance: ERGOCALCIFEROL
     Indication: HYPOVITAMINOSIS
     Dosage: UNK
     Dates: start: 20190612
  3. CYTARABINE. [Suspect]
     Active Substance: CYTARABINE
     Dosage: 4280 MILLIGRAM
     Dates: start: 20190504, end: 20190508
  4. CYTARABINE. [Suspect]
     Active Substance: CYTARABINE
     Dosage: 4160 MILLIGRAM, QD
     Dates: start: 20190612, end: 20190616
  5. METHOTREXATE. [Suspect]
     Active Substance: METHOTREXATE
     Indication: ACUTE MYELOID LEUKAEMIA
     Dosage: 12 MILLIGRAM, QD
     Dates: start: 20190503, end: 20190503
  6. PREDNISOLONE. [Suspect]
     Active Substance: PREDNISOLONE
     Dosage: 10 MILLIGRAM, QD
     Dates: start: 20190612, end: 20190612
  7. FLUDARABINE [Suspect]
     Active Substance: FLUDARABINE PHOSPHATE
     Dosage: 61.40 MILLIGRAM, QD
     Dates: start: 20190612, end: 20190616
  8. RAMIPRIL HCT [Concomitant]
     Active Substance: HYDROCHLOROTHIAZIDE\RAMIPRIL
     Indication: HYPERTENSION
     Dosage: UNK
     Dates: start: 20190512
  9. METHOTREXATE. [Suspect]
     Active Substance: METHOTREXATE
     Dosage: 12 MILLIGRAM, QD
     Dates: start: 20190612, end: 20190612
  10. VITAMIN B6 [Concomitant]
     Active Substance: PYRIDOXINE HYDROCHLORIDE
     Indication: PROPHYLAXIS
     Dosage: UNK
     Dates: start: 20190612, end: 20190616
  11. PANTOPRAZOL                        /01263201/ [Concomitant]
     Active Substance: PANTOPRAZOLE
     Dosage: UNK
  12. ARTELAC                            /00445101/ [Concomitant]
     Active Substance: HYPROMELLOSES
     Indication: PROPHYLAXIS
     Dosage: UNK
     Dates: start: 20190612, end: 20190617
  13. MYLOTARG [Suspect]
     Active Substance: GEMTUZUMAB OZOGAMICIN
     Indication: ACUTE MYELOID LEUKAEMIA
     Dosage: 963 MILLIGRAM, QD
     Dates: start: 20190505, end: 20190505
  14. ONDANSETRON [Concomitant]
     Active Substance: ONDANSETRON
     Indication: ANTIEMETIC SUPPORTIVE CARE
     Dosage: UNK
     Dates: start: 20160612, end: 20190617
  15. CYTARABINE. [Suspect]
     Active Substance: CYTARABINE
     Indication: ACUTE MYELOID LEUKAEMIA
     Dosage: 30 MILLIGRAM, QD
     Dates: start: 20190503, end: 20190503
  16. FLUDARABINE [Suspect]
     Active Substance: FLUDARABINE PHOSPHATE
     Indication: ACUTE MYELOID LEUKAEMIA
     Dosage: 64.20 MILLIGRAM, QD
     Dates: start: 20190504, end: 20190508
  17. DIMENHYDRINATE. [Concomitant]
     Active Substance: DIMENHYDRINATE
     Indication: ANTIEMETIC SUPPORTIVE CARE
     Dosage: UNK
     Dates: start: 20190612, end: 20190617

REACTIONS (2)
  - Infection [Unknown]
  - Bone marrow failure [Unknown]

NARRATIVE: CASE EVENT DATE: 20190626
